FAERS Safety Report 5021595-3 (Version None)
Quarter: 2006Q2

REPORT INFORMATION
  Report Type: 
  Country: None (occurrence: None)
  Receive Date: 20060605
  Receipt Date: 20060523
  Transmission Date: 20061013
  Serious: Yes (Other)
  Sender: FDA-Public Use
  Company Number: 2006067906

PATIENT
  Age: 61 Year
  Sex: Female
  Weight: 86.1834 kg

DRUGS (3)
  1. LIPITOR [Suspect]
     Indication: BLOOD CHOLESTEROL INCREASED
     Dosage: 100 MG (100 MG, DAILY), ORAL
     Route: 048
     Dates: start: 20010101, end: 20060501
  2. VERAPAMIL [Concomitant]
  3. ZOLOFT [Concomitant]

REACTIONS (6)
  - AGEUSIA [None]
  - CHEILITIS [None]
  - GLOSSODYNIA [None]
  - HYPOAESTHESIA ORAL [None]
  - SWELLING FACE [None]
  - SWOLLEN TONGUE [None]
